FAERS Safety Report 23890031 (Version 2)
Quarter: 2024Q4

REPORT INFORMATION
  Report Type: Spontaneous
  Country: US (occurrence: US)
  Receive Date: 20240523
  Receipt Date: 20241018
  Transmission Date: 20250114
  Serious: No
  Sender: SANOFI AVENTIS
  Company Number: US-SA-SAC20240520000596

PATIENT
  Age: 60 Year
  Sex: Female
  Weight: 77.24 kg

DRUGS (13)
  1. DUPIXENT [Suspect]
     Active Substance: DUPILUMAB
     Indication: Dermatitis atopic
     Dosage: 600 MG, 1X
     Route: 058
     Dates: start: 20240502, end: 20240502
  2. DUPIXENT [Suspect]
     Active Substance: DUPILUMAB
     Dosage: 300 MG, QOW
     Route: 058
     Dates: start: 202405
  3. CHROMIUM PICOLINATE [Concomitant]
     Active Substance: CHROMIUM PICOLINATE
  4. ALBUTEROL SULFATE [Concomitant]
     Active Substance: ALBUTEROL SULFATE
  5. CO-ENZIME Q-10 [Concomitant]
  6. WHEAT GERM OIL [Concomitant]
     Active Substance: WHEAT GERM OIL
  7. VITAMINS NOS [Concomitant]
     Active Substance: VITAMINS
  8. OZEMPIC [Concomitant]
     Active Substance: SEMAGLUTIDE
  9. ARMOUR THYROID [Concomitant]
     Active Substance: THYROID, PORCINE
  10. HAIR/SKIN NAILS [Concomitant]
  11. CLOBETASOL [Concomitant]
     Active Substance: CLOBETASOL
     Dosage: UNK
  12. FLAGYL [METRONIDAZOLE;NYSTATIN] [Concomitant]
  13. EPIPEN [Concomitant]
     Active Substance: EPINEPHRINE

REACTIONS (4)
  - Injection site irritation [Recovered/Resolved]
  - Dermatitis atopic [Unknown]
  - Injection site pruritus [Recovered/Resolved]
  - Injection site erythema [Recovered/Resolved]

NARRATIVE: CASE EVENT DATE: 20240101
